FAERS Safety Report 6044399-1 (Version None)
Quarter: 2009Q1

REPORT INFORMATION
  Report Type: 
  Country: None (occurrence: None)
  Receive Date: 20090120
  Receipt Date: 20081217
  Transmission Date: 20090719
  Serious: No
  Sender: FDA-Public Use
  Company Number: US-BAYER-200814944BCC

PATIENT
  Sex: Female

DRUGS (1)
  1. MIDOL (FORMULATION NOT SPECIFIED) [Suspect]
     Indication: DRUG USE FOR UNKNOWN INDICATION
     Dosage: UNIT DOSE: 220 MG
     Route: 048
     Dates: start: 20081216

REACTIONS (2)
  - FATIGUE [None]
  - INSOMNIA [None]
